FAERS Safety Report 9687158 (Version 2)
Quarter: 2015Q1

REPORT INFORMATION
  Report Type: Report from Study
  Country: US (occurrence: US)
  Receive Date: 20131113
  Receipt Date: 20150116
  Transmission Date: 20150721
  Serious: Yes (Death)
  Sender: FDA-Public Use
  Company Number: US-ROCHE-1303352

PATIENT
  Sex: Female
  Weight: 108.05 kg

DRUGS (11)
  1. AVASTIN [Suspect]
     Active Substance: BEVACIZUMAB
     Indication: BREAST CANCER FEMALE
     Dosage: SHE RECEIVED BEVACIZUMAB DOSE OF 1779 MG ON 07/JAN/2010, 28/JAN/2010 AND 18/FEB/2010
     Route: 042
     Dates: start: 20090527
  2. AVASTIN [Suspect]
     Active Substance: BEVACIZUMAB
     Indication: BONE CANCER
  3. CIMETIDINE HCL [Concomitant]
     Route: 030
     Dates: start: 20100107
  4. DIPHENHYDRAMINE HCL [Concomitant]
     Active Substance: DIPHENHYDRAMINE HYDROCHLORIDE
     Dosage: WITH NORMAL SALINE (28/JAN/2010,18/FEB/2010
     Route: 041
     Dates: start: 20100107
  5. FAMOTIDINE. [Concomitant]
     Active Substance: FAMOTIDINE
     Dosage: DAILY SHORT OVER 15 MINUTES WITH NORMAL SALINE (18/FEB/2010,
     Route: 042
     Dates: start: 20100218
  6. DEXAMETHASONE SODIUM PHOSPHATE. [Concomitant]
     Active Substance: DEXAMETHASONE SODIUM PHOSPHATE
     Dosage: WITH NORMAL SALINE (28/JAN/2010,18/FEB/2010
     Route: 041
     Dates: start: 20100107
  7. LUPRON [Concomitant]
     Active Substance: LEUPROLIDE ACETATE
  8. PALONOSETRON HYDROCHLORIDE [Concomitant]
     Active Substance: PALONOSETRON HYDROCHLORIDE
     Dosage: WITH NORMAL SALINE (28/JAN/2010, 18/FEB/2010
     Route: 041
     Dates: start: 20100107
  9. NORMAL SALINE [Concomitant]
     Active Substance: SODIUM CHLORIDE
     Route: 042
     Dates: start: 20100107
  10. ZOMETA [Concomitant]
     Active Substance: ZOLEDRONIC ACID
     Dosage: DAILY SHORT OVER 30 MINUTES IN NORMAL SALINE
     Route: 042
     Dates: start: 20100128, end: 20100128
  11. AVASTIN [Suspect]
     Active Substance: BEVACIZUMAB
     Indication: METASTASES TO LUNG

REACTIONS (8)
  - Death [Fatal]
  - Pain [Recovering/Resolving]
  - Odynophagia [Recovered/Resolved]
  - Breast cancer [Unknown]
  - Breast swelling [Unknown]
  - Fatigue [Recovered/Resolved]
  - Crying [Recovering/Resolving]
  - Breast induration [Unknown]
